FAERS Safety Report 9538598 (Version 1)
Quarter: 2013Q2

REPORT INFORMATION
  Report Type: Spontaneous
  Country: US (occurrence: None)
  Receive Date: 20130517
  Receipt Date: 20130517
  Transmission Date: 20140414
  Serious: No
  Sender: FDA-Public Use
  Company Number: 1000043360

PATIENT
  Age: 42 Year
  Sex: Female

DRUGS (7)
  1. VIIBRYD [Suspect]
     Indication: DEPRESSION
     Route: 048
     Dates: start: 20121215, end: 20121221
  2. VIIBRYD [Suspect]
     Indication: DEPRESSION
     Route: 048
     Dates: start: 20121229, end: 20130311
  3. TOPROLOL (METOPROLOL SUCCINATE) (METOPROLOL SUCCINATE) [Concomitant]
  4. BENAZEPRIL (BENAZEPRIL) (BENAZEPRIL) [Concomitant]
  5. ALPRAZOLAM (ALPRAZOLAM) (ALPRAZOLAM) [Concomitant]
  6. HYDROCORTISONE (HYDROCORTISONE) (HYDROCORTISONE) [Concomitant]
  7. PERMETHRIN (PERMETHRIN) (CREAM) (PERMETHRIN) [Concomitant]

REACTIONS (6)
  - Hypoaesthesia [None]
  - Paraesthesia [None]
  - Formication [None]
  - Muscle spasms [None]
  - Diarrhoea [None]
  - Insomnia [None]
